FAERS Safety Report 8984261 (Version 2)
Quarter: 2013Q1

REPORT INFORMATION
  Report Type: Spontaneous
  Country: US (occurrence: US)
  Receive Date: 20121226
  Receipt Date: 20130110
  Transmission Date: 20140127
  Serious: Yes (Other)
  Sender: FDA-Public Use
  Company Number: US-VERTEX PHARMACEUTICALS INC.-2012-026470

PATIENT
  Age: 45 Year
  Sex: Male

DRUGS (4)
  1. INCIVEK [Suspect]
     Indication: HEPATITIS C
     Dosage: UNK
     Route: 048
     Dates: start: 20121116
  2. PEGASYS [Suspect]
     Indication: HEPATITIS C
     Dosage: 135 ?G/KG, UNK
     Route: 058
     Dates: start: 20121116
  3. PEGASYS [Suspect]
     Dosage: 90 ?G/KG, UNK
  4. RIBAVIRIN [Suspect]
     Indication: HEPATITIS C
     Dosage: 1000 MG, UNK
     Route: 048
     Dates: start: 20121116

REACTIONS (1)
  - VIIth nerve paralysis [Recovered/Resolved]
